FAERS Safety Report 21932771 (Version 1)
Quarter: 2023Q1

REPORT INFORMATION
  Report Type: Spontaneous
  Country: US (occurrence: US)
  Receive Date: 20230131
  Receipt Date: 20230131
  Transmission Date: 20230417
  Serious: No
  Sender: FDA-Public Use
  Company Number: US-MLMSERVICE-20221229-4012194-1

PATIENT
  Age: 7 Decade
  Sex: Female

DRUGS (3)
  1. PRIMAXIN IV [Suspect]
     Active Substance: CILASTATIN SODIUM\IMIPENEM
     Indication: Nocardiosis
     Dosage: 500 MILLIGRAM, Q12H
     Route: 042
  2. LINEZOLID [Concomitant]
     Active Substance: LINEZOLID
     Indication: Nocardiosis
     Dosage: 600 MILLIGRAM, Q12H
     Route: 048
  3. SULFAMETHOXAZOLE\TRIMETHOPRIM [Concomitant]
     Active Substance: SULFAMETHOXAZOLE\TRIMETHOPRIM
     Indication: Nocardiosis
     Dosage: 192 MILLIGRAM, Q8H
     Route: 042

REACTIONS (1)
  - Product use in unapproved indication [Unknown]
